FAERS Safety Report 25250129 (Version 1)
Quarter: 2025Q2

REPORT INFORMATION
  Report Type: Spontaneous
  Country: IT (occurrence: IT)
  Receive Date: 20250429
  Receipt Date: 20250429
  Transmission Date: 20250717
  Serious: Yes (Other)
  Sender: ACCORD
  Company Number: IT-Accord-481281

PATIENT
  Age: 69 Year
  Sex: Male

DRUGS (2)
  1. CARMUSTINE [Suspect]
     Active Substance: CARMUSTINE
     Indication: Bone marrow conditioning regimen
     Dates: start: 202306
  2. THIOTEPA [Suspect]
     Active Substance: THIOTEPA
     Indication: Bone marrow conditioning regimen
     Dates: start: 202306

REACTIONS (3)
  - Clostridium difficile infection [Unknown]
  - Febrile neutropenia [Unknown]
  - Mucosal inflammation [Unknown]

NARRATIVE: CASE EVENT DATE: 20230101
